FAERS Safety Report 24037329 (Version 2)
Quarter: 2024Q3

REPORT INFORMATION
  Report Type: Report from Study
  Country: US (occurrence: US)
  Receive Date: 20240702
  Receipt Date: 20240930
  Transmission Date: 20241017
  Serious: Yes (Hospitalization)
  Sender: ABBVIE
  Company Number: US-ABBVIE-5820919

PATIENT
  Sex: Female

DRUGS (3)
  1. RINVOQ [Suspect]
     Active Substance: UPADACITINIB
     Indication: Rheumatoid arthritis
     Dosage: FORM STRENGTH: 15 MILLIGRAM
     Route: 048
     Dates: start: 202402, end: 202409
  2. RINVOQ [Suspect]
     Active Substance: UPADACITINIB
     Indication: Rheumatoid arthritis
     Dosage: FORM STRENGTH: 15 MILLIGRAM
     Route: 048
     Dates: start: 202409
  3. PROCRIT [Concomitant]
     Active Substance: ERYTHROPOIETIN
     Indication: Product used for unknown indication
     Dosage: FORM STRENGTH: 1 ML / VIAL?MULTIPLE-DOSE VIAL (MDV)
     Route: 065

REACTIONS (9)
  - Blood potassium decreased [Unknown]
  - Blood sodium decreased [Unknown]
  - Therapeutic product effect incomplete [Unknown]
  - Musculoskeletal stiffness [Not Recovered/Not Resolved]
  - Abdominal pain [Unknown]
  - Herpes zoster [Unknown]
  - Pain in extremity [Unknown]
  - Pain [Unknown]
  - Peripheral swelling [Unknown]

NARRATIVE: CASE EVENT DATE: 20240101
